FAERS Safety Report 7556616-7 (Version None)
Quarter: 2011Q2

REPORT INFORMATION
  Report Type: 
  Country: None (occurrence: None)
  Receive Date: 20110620
  Receipt Date: 20110531
  Transmission Date: 20111010
  Serious: Yes (Other)
  Sender: FDA-Public Use
  Company Number: DE-AMGEN-DEUSP2011030348

PATIENT
  Sex: Female
  Weight: 62 kg

DRUGS (1)
  1. PROLIA [Suspect]
     Indication: PRODUCT USED FOR UNKNOWN INDICATION
     Dosage: 60 MG, UNK

REACTIONS (2)
  - LABORATORY TEST ABNORMAL [None]
  - BONE DENSITY DECREASED [None]
